FAERS Safety Report 5019423-5 (Version None)
Quarter: 2006Q2

REPORT INFORMATION
  Report Type: 
  Country: None (occurrence: None)
  Receive Date: 20060531
  Receipt Date: 20060518
  Transmission Date: 20061013
  Serious: Yes (Hospitalization)
  Sender: FDA-Public Use
  Company Number: 6022726

PATIENT
  Age: 79 Year
  Sex: Male

DRUGS (6)
  1. LEVOTHYROXINE SODIUM [Suspect]
     Indication: HYPOTHYROIDISM
     Dosage: 1.00 DOSAGE FORMS (1 DOSAGE FORMS, 1 IN 1 D)
     Dates: start: 20051015
  2. ALTIM (SOLUTION FOR INJECTION) (CORTIVAZOL) [Suspect]
     Indication: ARTHRALGIA
     Dosage: INTRA-ARTICULAR
     Route: 014
     Dates: start: 20060105, end: 20060110
  3. ACTOS [Suspect]
     Dosage: ORAL
     Route: 048
     Dates: start: 20051215, end: 20060128
  4. IXPRIM (TABLET) (PARACETAMOL, TRAMADOL HYDROCHLORIDE) [Concomitant]
  5. FLECAINE (TABLET) (FLECAINIDE ACETATE) [Concomitant]
  6. EREXIN (TABLET) (PIROXICAM BETADEX) [Concomitant]

REACTIONS (3)
  - HYPERTENSION [None]
  - HYPERTENSIVE CRISIS [None]
  - WEIGHT INCREASED [None]
